FAERS Safety Report 23534699 (Version 2)
Quarter: 2024Q2

REPORT INFORMATION
  Report Type: Report from Study
  Country: IL (occurrence: IL)
  Receive Date: 20240217
  Receipt Date: 20240426
  Transmission Date: 20240716
  Serious: Yes (Hospitalization)
  Sender: FDA-Public Use
  Company Number: IL-ABBVIE-5640845

PATIENT
  Sex: Male

DRUGS (2)
  1. CARBIDOPA\LEVODOPA [Suspect]
     Active Substance: CARBIDOPA\LEVODOPA
     Indication: Parkinson^s disease
     Dosage: MORNING DOSE 10.5ML, CONTINUOUS DOSE 3.7ML/HOUR, EXTRA DOSE 2.4ML
     Route: 050
     Dates: start: 20160813
  2. CARBIDOPA\LEVODOPA [Suspect]
     Active Substance: CARBIDOPA\LEVODOPA
     Dosage: MORNING DOSE 10.5ML, CONTINUOUS DOSE 3.7ML/HOUR, EXTRA DOSE 2.4ML
     Route: 050

REACTIONS (6)
  - Femoral neck fracture [Unknown]
  - Fall [Unknown]
  - Freezing phenomenon [Unknown]
  - Weight decreased [Unknown]
  - Pain in extremity [Unknown]
  - Hypophagia [Unknown]
